FAERS Safety Report 13914248 (Version 1)
Quarter: 2017Q3

REPORT INFORMATION
  Report Type: Spontaneous
  Country: US (occurrence: US)
  Receive Date: 20170828
  Receipt Date: 20170828
  Transmission Date: 20171127
  Serious: No
  Sender: FDA-Public Use
  Company Number: US-ROCHE-1136549

PATIENT
  Sex: Male
  Weight: 58.7 kg

DRUGS (2)
  1. NUTROPIN AQ [Suspect]
     Active Substance: SOMATROPIN
     Indication: DELAYED PUBERTY
  2. NUTROPIN AQ [Suspect]
     Active Substance: SOMATROPIN
     Indication: BODY HEIGHT BELOW NORMAL
     Dosage: 0.3 MG/KG
     Route: 058

REACTIONS (5)
  - Vomiting [Unknown]
  - Bone deformity [Unknown]
  - Sinus congestion [Unknown]
  - Headache [Unknown]
  - Nausea [Unknown]
